FAERS Safety Report 14202117 (Version 1)
Quarter: 2017Q4

REPORT INFORMATION
  Report Type: Spontaneous
  Country: US (occurrence: US)
  Receive Date: 20171117
  Receipt Date: 20171117
  Transmission Date: 20180321
  Serious: Yes (Death, Other)
  Sender: FDA-Public Use
  Company Number: US-BAUSCH-BL-2017-031682

PATIENT
  Age: 57 Year
  Sex: Male

DRUGS (2)
  1. ACETAMINOPHEN. [Suspect]
     Active Substance: ACETAMINOPHEN
     Indication: PRODUCT USED FOR UNKNOWN INDICATION
     Route: 065
  2. METFORMIN [Suspect]
     Active Substance: METFORMIN HYDROCHLORIDE
     Indication: PRODUCT USED FOR UNKNOWN INDICATION
     Route: 065

REACTIONS (13)
  - Hepatotoxicity [Unknown]
  - Coma [Unknown]
  - Acute kidney injury [Unknown]
  - Exposure to toxic agent [Fatal]
  - Depressed level of consciousness [Unknown]
  - Rhabdomyolysis [Unknown]
  - Anion gap [Unknown]
  - Seizure [Unknown]
  - Hypoglycaemia [Unknown]
  - Leukocytosis [Unknown]
  - Hypotension [Unknown]
  - Coagulopathy [Unknown]
  - Metabolic acidosis [Unknown]
